FAERS Safety Report 22373389 (Version 1)
Quarter: 2023Q2

REPORT INFORMATION
  Report Type: Spontaneous
  Country: US (occurrence: None)
  Receive Date: 20230526
  Receipt Date: 20230526
  Transmission Date: 20230721
  Serious: Yes (Other)
  Sender: FDA-Public Use
  Company Number: None

PATIENT
  Age: 31 Year
  Sex: Male
  Weight: 80.2 kg

DRUGS (1)
  1. ASENAPINE [Suspect]
     Active Substance: ASENAPINE
     Indication: Schizoaffective disorder
     Dosage: FREQUENCY BID?
     Route: 060
     Dates: start: 20230522, end: 20230522

REACTIONS (2)
  - Agitation [None]
  - Hallucination [None]

NARRATIVE: CASE EVENT DATE: 20230522
